FAERS Safety Report 14553941 (Version 3)
Quarter: 2018Q2

REPORT INFORMATION
  Report Type: Spontaneous
  Country: US (occurrence: US)
  Receive Date: 20180220
  Receipt Date: 20180524
  Transmission Date: 20180711
  Serious: Yes (Other)
  Sender: FDA-Public Use
  Company Number: US-AKORN PHARMACEUTICALS-2018AKN00156

PATIENT
  Age: 16 Year
  Sex: Male
  Weight: 77.98 kg

DRUGS (1)
  1. MYORISAN [Suspect]
     Active Substance: ISOTRETINOIN
     Indication: ACNE CYSTIC
     Dosage: 60 MG, 1X/DAY
     Route: 048
     Dates: start: 20180127, end: 20180204

REACTIONS (12)
  - Dyspnoea [Recovered/Resolved]
  - Nausea [Unknown]
  - Throat tightness [Recovered/Resolved]
  - Dry throat [Recovered/Resolved]
  - Off label use [Recovered/Resolved]
  - Anaphylactic shock [Unknown]
  - Exfoliative rash [Not Recovered/Not Resolved]
  - Panic reaction [Recovered/Resolved]
  - Eye swelling [Recovered/Resolved]
  - Dry skin [Not Recovered/Not Resolved]
  - Rash erythematous [Not Recovered/Not Resolved]
  - Urticaria [Not Recovered/Not Resolved]

NARRATIVE: CASE EVENT DATE: 2018
